FAERS Safety Report 7223340-X (Version None)
Quarter: 2011Q1

REPORT INFORMATION
  Report Type: 
  Country: None (occurrence: None)
  Receive Date: 20110112
  Receipt Date: 20100511
  Transmission Date: 20110831
  Serious: No
  Sender: FDA-Public Use
  Company Number: US-ALLERGAN-1006184US

PATIENT
  Sex: Male

DRUGS (5)
  1. PREDNISONE [Concomitant]
     Dosage: .05 MG, UNK
  2. SIMVASTATIN [Concomitant]
     Indication: BLOOD CHOLESTEROL INCREASED
  3. RESTASIS [Suspect]
     Indication: DRY EYE
     Dosage: UNK
     Route: 047
  4. BENADRYL [Concomitant]
     Indication: HYPERSENSITIVITY
  5. REFRESH TEARS [Concomitant]

REACTIONS (1)
  - OCULAR HYPERAEMIA [None]
